FAERS Safety Report 6905670-1 (Version None)
Quarter: 2010Q3

REPORT INFORMATION
  Report Type: 
  Country: None (occurrence: None)
  Receive Date: 20100804
  Receipt Date: 20100730
  Transmission Date: 20110219
  Serious: Yes (Hospitalization)
  Sender: FDA-Public Use
  Company Number: CA-BRISTOL-MYERS SQUIBB COMPANY-15218647

PATIENT
  Age: 54 Year
  Sex: Male
  Weight: 114 kg

DRUGS (5)
  1. CISPLATIN [Suspect]
     Indication: NON-SMALL CELL LUNG CANCER
     Dosage: 2ND + RECENT INF ON:07JUL2010
     Route: 042
     Dates: start: 20100608
  2. PEMETREXED DISODIUM [Suspect]
     Indication: NON-SMALL CELL LUNG CANCER
     Dosage: 2ND + RECENT INF ON:07JUL2010
     Route: 042
     Dates: start: 20100608
  3. IBUPROFEN [Suspect]
     Dosage: EVERY 4 TO 6 HOURS
     Dates: start: 20100101
  4. ASPIRIN [Suspect]
     Dates: start: 20050626
  5. DECADRON [Suspect]
     Route: 065
     Dates: start: 20100608, end: 20100716

REACTIONS (1)
  - MELAENA [None]
